FAERS Safety Report 4622569-4 (Version None)
Quarter: 2005Q1

REPORT INFORMATION
  Report Type: 
  Country: None (occurrence: None)
  Receive Date: 20050325
  Receipt Date: 20050325
  Transmission Date: 20050727
  Serious: Yes (Hospitalization)
  Sender: FDA-Public Use
  Company Number: None

PATIENT

DRUGS (4)
  1. NEUPOGEN [Suspect]
     Indication: BONE MARROW DEPRESSION
     Dosage: 1 PER DAY  SUBCUTANEO
     Route: 058
     Dates: start: 20050317, end: 20050322
  2. NEUPOGEN [Suspect]
     Indication: CHEMOTHERAPY
     Dosage: 1 PER DAY  SUBCUTANEO
     Route: 058
     Dates: start: 20050317, end: 20050322
  3. TAXOTERE [Concomitant]
  4. CISPLATIN [Concomitant]

REACTIONS (3)
  - ABDOMINAL PAIN [None]
  - BACK PAIN [None]
  - DYSPEPSIA [None]
